FAERS Safety Report 7370344-2 (Version None)
Quarter: 2011Q1

REPORT INFORMATION
  Report Type: 
  Country: None (occurrence: None)
  Receive Date: 20110323
  Receipt Date: 20110318
  Transmission Date: 20110831
  Serious: Yes (Other)
  Sender: FDA-Public Use
  Company Number: AU-PFIZER INC-2011036766

PATIENT
  Age: 43 Year
  Sex: Male

DRUGS (5)
  1. CELEBREX [Suspect]
     Indication: EPICONDYLITIS
     Dosage: 200 MG, 1X/DAY
     Route: 048
     Dates: start: 20090713, end: 20100213
  2. FLEX-ALL ^CHATTEM^ [Concomitant]
     Indication: EPICONDYLITIS
     Dosage: THREE TIMES DAILY AS NEEDED
     Route: 061
  3. IBRUPROFEN [Suspect]
     Dosage: UNK
  4. PANAMAX CO [Suspect]
     Indication: EPICONDYLITIS
     Dosage: TWO THREE TIMES DAILY ORALLY
     Route: 048
     Dates: start: 20090707
  5. ETHANOL [Suspect]
     Dosage: UNK

REACTIONS (4)
  - HELICOBACTER INFECTION [None]
  - NAUSEA [None]
  - ALCOHOL WITHDRAWAL SYNDROME [None]
  - ABDOMINAL PAIN UPPER [None]
